FAERS Safety Report 24855139 (Version 1)
Quarter: 2025Q1

REPORT INFORMATION
  Report Type: Spontaneous
  Country: FR (occurrence: FR)
  Receive Date: 20250117
  Receipt Date: 20250117
  Transmission Date: 20250408
  Serious: Yes (Other)
  Sender: AUROBINDO
  Company Number: FR-AFSSAPS-AN2025000005

PATIENT
  Age: 40 Year
  Sex: Female

DRUGS (3)
  1. PRAMIPEXOLE [Suspect]
     Active Substance: PRAMIPEXOLE
     Indication: Depression
     Dosage: 0.26 MILLIGRAM, ONCE A DAY
     Route: 048
     Dates: start: 20240612, end: 20241123
  2. DESOGESTREL [Concomitant]
     Active Substance: DESOGESTREL
     Indication: Product used for unknown indication
     Route: 048
     Dates: end: 20240715
  3. VORTIOXETINE [Concomitant]
     Active Substance: VORTIOXETINE
     Indication: Product used for unknown indication
     Route: 048
     Dates: start: 202404, end: 20240731

REACTIONS (1)
  - Prurigo [Recovering/Resolving]

NARRATIVE: CASE EVENT DATE: 20240601
